FAERS Safety Report 18495056 (Version 1)
Quarter: 2020Q4

REPORT INFORMATION
  Report Type: Spontaneous
  Country: GB (occurrence: GB)
  Receive Date: 20201112
  Receipt Date: 20201112
  Transmission Date: 20210114
  Serious: Yes (Hospitalization)
  Sender: FDA-Public Use
  Company Number: GB-GLAXOSMITHKLINE-GB2020EME221197

PATIENT

DRUGS (3)
  1. IMIGRAN [Suspect]
     Active Substance: SUMATRIPTAN SUCCINATE
     Indication: CLUSTER HEADACHE
     Dosage: UNK
  2. IMIGRAN [Suspect]
     Active Substance: SUMATRIPTAN SUCCINATE
     Indication: CLUSTER HEADACHE
     Dosage: UNK
  3. IMIGRAN [Suspect]
     Active Substance: SUMATRIPTAN SUCCINATE

REACTIONS (1)
  - Hospitalisation [Unknown]
